FAERS Safety Report 8932523 (Version 1)
Quarter: 2012Q4

REPORT INFORMATION
  Report Type: Spontaneous
  Country: US (occurrence: None)
  Receive Date: 20121121
  Receipt Date: 20121121
  Transmission Date: 20130627
  Serious: No
  Sender: FDA-Public Use
  Company Number: None

PATIENT
  Age: 68 Year
  Sex: Female
  Weight: 70.31 kg

DRUGS (1)
  1. CLINDAMYCIN HCL [Suspect]
     Indication: NOSE INFECTION NOS
     Dosage: 1 CAP. 3 x A Day MOUTH
     Route: 048
     Dates: start: 20121003, end: 20121005

REACTIONS (12)
  - Nausea [None]
  - Dizziness [None]
  - Erythema [None]
  - Burning sensation [None]
  - Swelling face [None]
  - Erythema [None]
  - Erythema [None]
  - Rash [None]
  - Rash [None]
  - Pyrexia [None]
  - Feeling abnormal [None]
  - Feeling hot [None]
